FAERS Safety Report 15958464 (Version 3)
Quarter: 2019Q1

REPORT INFORMATION
  Report Type: Spontaneous
  Country: AT (occurrence: AT)
  Receive Date: 20190213
  Receipt Date: 20190325
  Transmission Date: 20190417
  Serious: Yes (Life-Threatening, Other)
  Sender: FDA-Public Use
  Company Number: AT-BAXTER-2019BAX002786

PATIENT
  Age: 68 Year
  Sex: Female

DRUGS (2)
  1. TISSEEL [Suspect]
     Active Substance: FIBRINOGEN HUMAN\THROMBIN HUMAN
     Indication: TISSUE SEALING
  2. TISSEEL [Suspect]
     Active Substance: FIBRINOGEN HUMAN\THROMBIN HUMAN
     Indication: BIOPSY LUNG
     Dosage: TISSEEL S/D 2.0 ML
     Route: 065
     Dates: start: 20180605, end: 20180605

REACTIONS (2)
  - Nervous system disorder [Unknown]
  - Post procedural stroke [Unknown]

NARRATIVE: CASE EVENT DATE: 20180605
